FAERS Safety Report 5447455-1 (Version None)
Quarter: 2007Q3

REPORT INFORMATION
  Report Type: 
  Country: None (occurrence: None)
  Receive Date: 20070905
  Receipt Date: 20070827
  Transmission Date: 20080115
  Serious: Yes (Other)
  Sender: FDA-Public Use
  Company Number: GXKR2007JP06341

PATIENT
  Age: 78 Year
  Sex: Male

DRUGS (6)
  1. RIFAMPICIN [Suspect]
     Indication: PULMONARY TUBERCULOSIS
     Dosage: 1 DF, 4 DF
     Dates: start: 20050824
  2. RIFAMPICIN [Suspect]
     Indication: PULMONARY TUBERCULOSIS
     Dosage: 1 DF, 4 DF
     Dates: start: 20070828
  3. ISONIAZID [Suspect]
     Indication: PULMONARY TUBERCULOSIS
  4. ETHAMBUTOL HYDROCHLORIDE [Suspect]
  5. PYRAZINAMIDE [Suspect]
     Indication: PULMONARY TUBERCULOSIS
  6. LEVOFLOXACIN [Concomitant]

REACTIONS (5)
  - ATELECTASIS [None]
  - DRUG ERUPTION [None]
  - PRURITUS [None]
  - SUBILEUS [None]
  - URINARY RETENTION [None]
